FAERS Safety Report 14540093 (Version 1)
Quarter: 2018Q1

REPORT INFORMATION
  Report Type: Spontaneous
  Country: BE (occurrence: BE)
  Receive Date: 20180216
  Receipt Date: 20180216
  Transmission Date: 20180509
  Serious: Yes (Hospitalization, Other)
  Sender: FDA-Public Use
  Company Number: BE-009507513-1802BEL005293

PATIENT
  Age: 68 Year
  Sex: Female

DRUGS (1)
  1. DIPROPHOS [Suspect]
     Active Substance: BETAMETHASONE DIPROPIONATE\BETAMETHASONE SODIUM PHOSPHATE
     Indication: ARTHRITIS
     Dosage: UNK UNK, ONCE
     Dates: start: 20180108, end: 20180108

REACTIONS (1)
  - Arthritis bacterial [Not Recovered/Not Resolved]

NARRATIVE: CASE EVENT DATE: 201801
